FAERS Safety Report 25178176 (Version 1)
Quarter: 2025Q2

REPORT INFORMATION
  Report Type: Spontaneous
  Country: US (occurrence: US)
  Receive Date: 20250409
  Receipt Date: 20250409
  Transmission Date: 20250716
  Serious: Yes (Death)
  Sender: ZEALAND PHARMACEUTICALS
  Company Number: US-ZPPROD-ZP24US000912

PATIENT

DRUGS (4)
  1. ZEGALOGUE [Suspect]
     Active Substance: DASIGLUCAGON
  2. INSULIN DEGLUDEC [Suspect]
     Active Substance: INSULIN DEGLUDEC
  3. NOVOLOG [Suspect]
     Active Substance: INSULIN ASPART
  4. TRESIBA [Suspect]
     Active Substance: INSULIN DEGLUDEC

REACTIONS (1)
  - Death [Fatal]
